FAERS Safety Report 16038770 (Version 1)
Quarter: 2019Q1

REPORT INFORMATION
  Report Type: Spontaneous
  Country: NL (occurrence: NL)
  Receive Date: 20190305
  Receipt Date: 20190305
  Transmission Date: 20190418
  Serious: Yes (Hospitalization)
  Sender: FDA-Public Use
  Company Number: NL-AUROBINDO-AUR-APL-2018-001715

PATIENT

DRUGS (5)
  1. LEUCOVORIN. [Suspect]
     Active Substance: LEUCOVORIN
     Indication: COLORECTAL CANCER
     Dosage: 400 MG/M2 (ON 20/JAN/2017, THE PATIENT RECEIVED MOST RECENT DOSE OF LEUCOVORIN PRIOR TO SERIOUS AE)
     Route: 042
     Dates: start: 20161215
  2. OXALIPLATIN. [Suspect]
     Active Substance: OXALIPLATIN
     Indication: COLORECTAL CANCER
     Dosage: 85 MG/M2 (ON 20/JAN/2017, THE PATIENT RECEIVED MOST RECENT DOSE OF OXALIPLATIN PRIOR TO SERIOUS AE)
     Route: 042
     Dates: start: 20161215
  3. AVASTIN [Suspect]
     Active Substance: BEVACIZUMAB
     Indication: COLORECTAL CANCER
     Dosage: 5 MG/KG (ON 29/DEC/2016, THE PATIENT RECEIVED MOST RECENT DOSE OF BEVACIZUMAB PRIOR TO SERIOUS AE)
     Route: 042
     Dates: start: 20161215, end: 20161229
  4. 5-FLUOROURACIL [Suspect]
     Active Substance: FLUOROURACIL
     Indication: COLORECTAL CANCER
     Dosage: 3200MG/M2 2PER WEEK(20JAN2017 THE PT RECEIVED MOST RECENT DOSE OF FLUOROURACIL PRIOR TO SERIOUS AE)
     Route: 042
     Dates: start: 20161215
  5. IRINOTECAN [Suspect]
     Active Substance: IRINOTECAN
     Indication: COLORECTAL CANCER
     Dosage: 165 MG/M2 (ON 20/JAN/2017, THE PATIENT RECEIVED MOST RECENT DOSE OF IRINOTECAN PRIOR TO SERIOUS AE)
     Route: 042
     Dates: start: 20161215

REACTIONS (2)
  - Fistula [Recovered/Resolved]
  - Ill-defined disorder [Recovered/Resolved]

NARRATIVE: CASE EVENT DATE: 20170206
